FAERS Safety Report 6421053-5 (Version None)
Quarter: 2009Q4

REPORT INFORMATION
  Report Type: 
  Country: None (occurrence: None)
  Receive Date: 20091030
  Receipt Date: 20091018
  Transmission Date: 20100525
  Serious: No
  Sender: FDA-Public Use
  Company Number: NZ-ROCHE-665001

PATIENT

DRUGS (1)
  1. TAMIFLU [Suspect]

REACTIONS (2)
  - LIVE BIRTH [None]
  - NO ADVERSE EVENT [None]
